FAERS Safety Report 9277412 (Version 1)
Quarter: 2013Q2

REPORT INFORMATION
  Report Type: Spontaneous
  Country: US (occurrence: US)
  Receive Date: 20130508
  Receipt Date: 20130508
  Transmission Date: 20140414
  Serious: Yes (Hospitalization)
  Sender: FDA-Public Use
  Company Number: US-SANOFI-AVENTIS-2013SA044509

PATIENT
  Age: 65 Year
  Sex: Female

DRUGS (4)
  1. APIDRA SOLOSTAR [Suspect]
     Indication: TYPE 2 DIABETES MELLITUS
     Dosage: START DATE: SEVERAL YEARS AGO,?DAILY DOSE TAKEN WITH MEALS DOSE:18 UNIT(S)
     Route: 058
  2. SOLOSTAR [Suspect]
     Indication: TYPE 2 DIABETES MELLITUS
  3. LANTUS SOLOSTAR [Suspect]
     Indication: TYPE 2 DIABETES MELLITUS
     Dosage: DAILY DOSE: 55-57 UNITS AM AND PM.?START DATE: SEVERAL YEARS AGO
     Route: 058
  4. SOLOSTAR [Suspect]
     Indication: TYPE 2 DIABETES MELLITUS

REACTIONS (6)
  - Loss of consciousness [Unknown]
  - Body temperature increased [Unknown]
  - Sepsis [Unknown]
  - Cellulitis [Unknown]
  - Cerebrovascular accident [Unknown]
  - Hearing impaired [Unknown]
